FAERS Safety Report 6447343-8 (Version None)
Quarter: 2009Q4

REPORT INFORMATION
  Report Type: 
  Country: None (occurrence: None)
  Receive Date: 20091119
  Receipt Date: 20091117
  Transmission Date: 20100525
  Serious: Yes (Hospitalization, Other)
  Sender: FDA-Public Use
  Company Number: US-RB-025167-09

PATIENT
  Age: 47 Year
  Sex: Male

DRUGS (5)
  1. SUBOXONE [Suspect]
     Indication: PAIN
     Route: 060
     Dates: start: 20070101, end: 20090401
  2. SUBOXONE [Suspect]
     Dosage: TAKING VARIED DAILY DOSES.
     Route: 060
     Dates: start: 20090401
  3. VALIUM [Concomitant]
     Indication: DRUG USE FOR UNKNOWN INDICATION
     Dosage: DOSE AND FREQUENCY ARE UNKNOWN
     Route: 065
  4. XANAX [Concomitant]
     Indication: ANXIETY
     Dosage: DOSE AND FREQUENCY ARE UNKNOWN
     Route: 065
  5. ANTIDEPRESSANT [Concomitant]
     Indication: DEPRESSION
     Dosage: DOSING AND FREQUENCY IS UNKNOWN
     Route: 065

REACTIONS (9)
  - CHILLS [None]
  - DEPRESSION [None]
  - DRUG WITHDRAWAL SYNDROME [None]
  - HYPERHIDROSIS [None]
  - MUSCLE SPASMS [None]
  - PALPITATIONS [None]
  - SUICIDAL IDEATION [None]
  - TREMOR [None]
  - VOMITING [None]
